FAERS Safety Report 7105116-7 (Version None)
Quarter: 2010Q4

REPORT INFORMATION
  Report Type: 
  Country: None (occurrence: None)
  Receive Date: 20101116
  Receipt Date: 20101109
  Transmission Date: 20110411
  Serious: Yes (Disabling)
  Sender: FDA-Public Use
  Company Number: AU-PFIZER INC-2010145156

PATIENT
  Sex: Male

DRUGS (12)
  1. LIPITOR [Suspect]
     Dosage: UNK
  2. CADUET [Suspect]
     Dosage: UNK
  3. CALTRATE [Concomitant]
     Dosage: UNK
  4. CIPRAMIL [Concomitant]
     Dosage: UNK
  5. LOMOTIL [Concomitant]
     Dosage: UNK
  6. SLO-MAG [Concomitant]
     Dosage: UNK
  7. TRITACE [Concomitant]
     Dosage: UNK
  8. CARTIA XT [Concomitant]
     Dosage: UNK
  9. LIPIDIL [Concomitant]
     Dosage: UNK
  10. MINAX [Concomitant]
     Dosage: UNK
  11. CITALOPRAM HYDROBROMIDE [Concomitant]
     Dosage: UNK
  12. NITROLINGUAL PUMPSPRAY [Concomitant]
     Dosage: UNK

REACTIONS (2)
  - INCORRECT DOSE ADMINISTERED [None]
  - PAIN IN EXTREMITY [None]
